FAERS Safety Report 8576173-6 (Version None)
Quarter: 2012Q3

REPORT INFORMATION
  Report Type: 
  Country: None (occurrence: None)
  Receive Date: 20120807
  Receipt Date: 20120806
  Transmission Date: 20120928
  Serious: No
  Sender: FDA-Public Use
  Company Number: US-PFIZER INC-2012191167

PATIENT
  Age: 48 Year
  Sex: Female
  Weight: 77.1 kg

DRUGS (2)
  1. ESTRING [Suspect]
     Indication: HORMONE REPLACEMENT THERAPY
     Dosage: UNK
     Route: 067
     Dates: start: 20120729, end: 20120730
  2. VAGIFEM [Concomitant]
     Dosage: 10 UG, 1X/DAY

REACTIONS (3)
  - VULVOVAGINAL DISCOMFORT [None]
  - PRODUCT QUALITY ISSUE [None]
  - DRUG INEFFECTIVE [None]
